FAERS Safety Report 15624551 (Version 2)
Quarter: 2018Q4

REPORT INFORMATION
  Report Type: Report from Study
  Country: IT (occurrence: IT)
  Receive Date: 20181116
  Receipt Date: 20181117
  Transmission Date: 20190205
  Serious: Yes (Hospitalization)
  Sender: FDA-Public Use
  Company Number: IT-TEVA-2018-IT-975234

PATIENT
  Age: 18 Year
  Sex: Female

DRUGS (1)
  1. LESTRONETTE 0,10 MG + 0,02 MG COMPRESSE RIVESTITE CON FILM [Suspect]
     Active Substance: ETHINYL ESTRADIOL\LEVONORGESTREL
     Indication: ORAL CONTRACEPTION
     Route: 048
     Dates: start: 20180816, end: 20180916

REACTIONS (7)
  - Cerebral artery thrombosis [Recovered/Resolved with Sequelae]
  - Facial paresis [Recovered/Resolved with Sequelae]
  - Pupils unequal [Recovered/Resolved with Sequelae]
  - Deep vein thrombosis [Recovered/Resolved with Sequelae]
  - Aphasia [Recovered/Resolved with Sequelae]
  - Hemiplegia [Recovered/Resolved with Sequelae]
  - Ischaemic stroke [Recovered/Resolved with Sequelae]

NARRATIVE: CASE EVENT DATE: 20180916
